FAERS Safety Report 8451363-1 (Version None)
Quarter: 2012Q2

REPORT INFORMATION
  Report Type: 
  Country: None (occurrence: None)
  Receive Date: 20120620
  Receipt Date: 20120225
  Transmission Date: 20120825
  Serious: No
  Sender: FDA-Public Use
  Company Number: US-VERTEX PHARMACEUTICALS INC.-AE-2012-002791

PATIENT
  Sex: Male

DRUGS (5)
  1. MOTRIN [Concomitant]
     Indication: PAIN
  2. RIBAVIRIN [Concomitant]
     Indication: HEPATITIS C
     Route: 058
     Dates: start: 20111206
  3. INCIVEK [Suspect]
     Indication: HEPATITIS C
     Route: 048
     Dates: start: 20111206
  4. RIBAVIRIN [Concomitant]
     Route: 048
     Dates: start: 20111206
  5. RIBAVIRIN [Concomitant]
     Route: 048
     Dates: start: 20120210

REACTIONS (3)
  - LYMPHADENOPATHY [None]
  - RASH [None]
  - ANAEMIA [None]
